FAERS Safety Report 8858525 (Version 1)
Quarter: 2012Q4

REPORT INFORMATION
  Report Type: 
  Country: US (occurrence: US)
  Receive Date: 20121024
  Receipt Date: 20121024
  Transmission Date: 20130627
  Serious: Yes (Hospitalization)
  Sender: FDA-Public Use
  Company Number: PHEH2012US020797

PATIENT
  Sex: Female

DRUGS (2)
  1. EXTAVIA [Suspect]
     Indication: MULTIPLE SCLEROSIS
     Dosage: 0.125 mg, QOD
     Route: 058
     Dates: start: 20120926
  2. MUSCLE RELAXANTS [Concomitant]

REACTIONS (3)
  - Loss of consciousness [Recovering/Resolving]
  - Disorientation [Recovering/Resolving]
  - Weight decreased [Recovering/Resolving]
